FAERS Safety Report 5865819-9 (Version None)
Quarter: 2008Q3

REPORT INFORMATION
  Report Type: 
  Country: None (occurrence: None)
  Receive Date: 20080829
  Receipt Date: 20080822
  Transmission Date: 20090109
  Serious: Yes (Hospitalization)
  Sender: FDA-Public Use
  Company Number: NO-SANOFI-SYNTHELABO-A01200810134

PATIENT
  Age: 66 Year
  Sex: Male

DRUGS (2)
  1. FLUOROURACIL [Concomitant]
     Indication: COLON CANCER
     Route: 042
  2. ELOXATIN [Suspect]
     Indication: COLON CANCER
     Route: 042

REACTIONS (1)
  - MYELOPROLIFERATIVE DISORDER [None]
